FAERS Safety Report 20652342 (Version 1)
Quarter: 2022Q1

REPORT INFORMATION
  Report Type: Spontaneous
  Country: JP (occurrence: JP)
  Receive Date: 20220330
  Receipt Date: 20220330
  Transmission Date: 20220424
  Serious: Yes (Other)
  Sender: FDA-Public Use
  Company Number: JP-TEVA-2022-JP-2018744

PATIENT

DRUGS (1)
  1. TRISENOX [Suspect]
     Active Substance: ARSENIC TRIOXIDE
     Route: 042

REACTIONS (1)
  - Pericardial effusion [Unknown]
